FAERS Safety Report 5870672-3 (Version None)
Quarter: 2008Q3

REPORT INFORMATION
  Report Type: 
  Country: None (occurrence: None)
  Receive Date: 20080904
  Receipt Date: 20080904
  Transmission Date: 20090109
  Serious: Yes (Hospitalization)
  Sender: FDA-Public Use
  Company Number: PHEH1996US07622

PATIENT
  Sex: Female
  Weight: 85 kg

DRUGS (9)
  1. NEORAL [Suspect]
     Route: 048
     Dates: start: 19950406
  2. AZATHIOPRINE [Concomitant]
     Dosage: UNSPECIFIED
     Route: 065
  3. PREDNISONE [Concomitant]
     Dosage: UNSPECIFIED
     Route: 065
  4. AMPHOTERICIN B [Suspect]
     Dosage: UNSPECIFIED
     Route: 065
  5. ACYCLOVIR [Concomitant]
  6. SULFAMETHOXAZOLE [Concomitant]
  7. TRIMETHOPRIM [Concomitant]
  8. CLONIDINE [Concomitant]
  9. NIFEDIPINE [Concomitant]

REACTIONS (2)
  - BLOOD CREATININE INCREASED [None]
  - RENAL TUBULAR NECROSIS [None]
